FAERS Safety Report 18073006 (Version 1)
Quarter: 2020Q3

REPORT INFORMATION
  Report Type: Spontaneous
  Country: US (occurrence: US)
  Receive Date: 20200727
  Receipt Date: 20200727
  Transmission Date: 20201103
  Serious: Yes (Other)
  Sender: FDA-Public Use
  Company Number: None

PATIENT
  Age: 67 Year
  Sex: Female
  Weight: 60.75 kg

DRUGS (7)
  1. EQUATE DAILY MULTIVITAMIN FOR ADULTS OVER 50) [Concomitant]
  2. LOVOSTATIN [Concomitant]
  3. AZELASTINE HCI NASAL SPRAY 0.15% [Suspect]
     Active Substance: AZELASTINE HYDROCHLORIDE
     Indication: SEASONAL ALLERGY
     Dosage: ?          QUANTITY:2 SPRAY(S);?
     Route: 055
     Dates: start: 20200222, end: 20200424
  4. BENICAR [Concomitant]
     Active Substance: OLMESARTAN MEDOXOMIL
  5. ALBUTEROL. [Concomitant]
     Active Substance: ALBUTEROL
  6. HYDROCHLOROTHIAZIDE. [Concomitant]
     Active Substance: HYDROCHLOROTHIAZIDE
  7. MELATONIN [Concomitant]
     Active Substance: MELATONIN

REACTIONS (2)
  - Migraine [None]
  - Visual impairment [None]

NARRATIVE: CASE EVENT DATE: 20200419
